FAERS Safety Report 24359047 (Version 1)
Quarter: 2024Q3

REPORT INFORMATION
  Report Type: Spontaneous
  Country: US (occurrence: US)
  Receive Date: 20240924
  Receipt Date: 20240924
  Transmission Date: 20241017
  Serious: No
  Sender: PERRIGO
  Company Number: US-PERRIGO-24US007125

PATIENT
  Age: 18 Year
  Sex: Female
  Weight: 47.619 kg

DRUGS (2)
  1. LEVONORGESTREL [Suspect]
     Active Substance: LEVONORGESTREL
     Indication: Post coital contraception
     Dosage: 1.5 MG, SINGLE
     Route: 048
     Dates: start: 20240719, end: 20240719
  2. LEVONORGESTREL [Suspect]
     Active Substance: LEVONORGESTREL
     Dosage: 1.5 MG, SINGLE
     Route: 048
     Dates: start: 202404, end: 202404

REACTIONS (1)
  - Polymenorrhoea [Not Recovered/Not Resolved]

NARRATIVE: CASE EVENT DATE: 20240724
